FAERS Safety Report 4829735-3 (Version None)
Quarter: 2005Q4

REPORT INFORMATION
  Report Type: 
  Country: None (occurrence: None)
  Receive Date: 20051027
  Receipt Date: 20050113
  Transmission Date: 20060501
  Serious: Yes (Other)
  Sender: FDA-Public Use
  Company Number: HQWYE212017JUL04

PATIENT
  Age: 63 Year
  Sex: Female

DRUGS (8)
  1. PREMARIN [Suspect]
     Dosage: ORAL
     Route: 048
     Dates: start: 19940101, end: 20020101
  2. DIOVAN [Concomitant]
  3. VERAPAMIL [Concomitant]
  4. NORVASC [Concomitant]
  5. ACETYLSALICYLIC ACID SRT [Concomitant]
  6. TRICOR [Concomitant]
  7. PREVACID [Concomitant]
  8. ZYRTEC [Concomitant]

REACTIONS (1)
  - BREAST CANCER [None]
